FAERS Safety Report 20659747 (Version 1)
Quarter: 2022Q1

REPORT INFORMATION
  Report Type: Spontaneous
  Country: US (occurrence: US)
  Receive Date: 20220331
  Receipt Date: 20220331
  Transmission Date: 20220424
  Serious: No
  Sender: FDA-Public Use
  Company Number: US-SA-SAC20220325000656

PATIENT
  Sex: Female

DRUGS (2)
  1. DUPIXENT [Suspect]
     Active Substance: DUPILUMAB
     Indication: Dermatitis atopic
     Dosage: 300 MG, QOW
     Route: 058
     Dates: start: 20201217
  2. SAXENDA [Concomitant]
     Active Substance: LIRAGLUTIDE
     Dosage: 18MG/ML

REACTIONS (4)
  - Impaired quality of life [Recovering/Resolving]
  - Discomfort [Recovering/Resolving]
  - Dermatitis atopic [Unknown]
  - Rash [Recovering/Resolving]
